FAERS Safety Report 24000124 (Version 1)
Quarter: 2024Q2

REPORT INFORMATION
  Report Type: Spontaneous
  Country: US (occurrence: US)
  Receive Date: 20240621
  Receipt Date: 20240621
  Transmission Date: 20240716
  Serious: No
  Sender: FDA-Public Use
  Company Number: US-SANOFI-02072424

PATIENT
  Age: 21 Year
  Sex: Female

DRUGS (2)
  1. IPOL [Suspect]
     Active Substance: POLIOVIRUS TYPE 1 ANTIGEN (FORMALDEHYDE INACTIVATED)\POLIOVIRUS TYPE 2 ANTIGEN (FORMALDEHYDE INACTIV
     Indication: Immunisation
     Dosage: .1 ML
     Route: 023
     Dates: start: 20240531, end: 20240531
  2. TUBERCULIN PURIFIED PROTEIN DERIVATIVE [Suspect]
     Active Substance: TUBERCULIN PURIFIED PROTEIN DERIVATIVE
     Indication: Immunisation
     Dosage: UNK

REACTIONS (2)
  - Incorrect route of product administration [Unknown]
  - Wrong product administered [Unknown]

NARRATIVE: CASE EVENT DATE: 20240531
